FAERS Safety Report 7207677-6 (Version None)
Quarter: 2011Q1

REPORT INFORMATION
  Report Type: 
  Country: None (occurrence: None)
  Receive Date: 20110103
  Receipt Date: 20101221
  Transmission Date: 20110831
  Serious: Yes (Disabling, Other)
  Sender: FDA-Public Use
  Company Number: CA-GENENTECH-243377

PATIENT
  Sex: Male
  Weight: 102.1 kg

DRUGS (12)
  1. XOLAIR [Suspect]
  2. XOLAIR [Suspect]
     Dosage: 375 MG, Q2W
     Route: 058
     Dates: start: 20070418
  3. XOLAIR [Suspect]
     Dosage: 375 MG, Q2W
     Route: 058
     Dates: start: 20090618
  4. XOLAIR [Suspect]
     Dosage: 375 MG, Q2W
     Route: 058
     Dates: start: 20100330
  5. XOLAIR [Suspect]
     Indication: ASTHMA
     Dosage: 375 MG, Q2W
     Route: 058
     Dates: start: 20050821
  6. XOLAIR [Suspect]
     Dosage: 375 MG, Q2W
     Dates: start: 20091008
  7. XOLAIR [Suspect]
  8. PREDNISONE [Concomitant]
     Indication: PRODUCT USED FOR UNKNOWN INDICATION
  9. XOLAIR [Suspect]
     Dosage: 375 MG, Q2W
     Route: 058
     Dates: start: 20090702
  10. XOLAIR [Suspect]
  11. XOLAIR [Suspect]
     Dosage: 375 MG, Q2W
     Route: 058
     Dates: start: 20090924
  12. XOLAIR [Suspect]
     Dosage: 375 MG, Q2W
     Route: 058
     Dates: start: 20091203

REACTIONS (18)
  - COMPUTERISED TOMOGRAM ABNORMAL [None]
  - PAIN IN EXTREMITY [None]
  - OBSTRUCTIVE AIRWAYS DISORDER [None]
  - SUPRAVENTRICULAR TACHYCARDIA [None]
  - HEART RATE INCREASED [None]
  - WHEEZING [None]
  - HEART RATE IRREGULAR [None]
  - LOWER RESPIRATORY TRACT INFECTION [None]
  - BLOOD PRESSURE ABNORMAL [None]
  - COUGH [None]
  - HAEMATOMA [None]
  - BRONCHOSPASM [None]
  - DYSPNOEA [None]
  - NASOPHARYNGITIS [None]
  - HYPERHIDROSIS [None]
  - ASTHMA [None]
  - DRUG INEFFECTIVE [None]
  - HYPOVENTILATION [None]
